FAERS Safety Report 8786503 (Version 3)
Quarter: 2012Q4

REPORT INFORMATION
  Report Type: 
  Country: US (occurrence: US)
  Receive Date: 20120914
  Receipt Date: 20121225
  Transmission Date: 20130627
  Serious: No
  Sender: FDA-Public Use
  Company Number: US-009507513-1208USA003391

PATIENT
  Sex: Male

DRUGS (3)
  1. PEG-INTRON [Suspect]
     Indication: HEPATITIS C
     Dosage: UNK
     Dates: start: 20120629
  2. REBETOL [Suspect]
     Indication: HEPATITIS C
     Dosage: UNK
     Dates: start: 20120629
  3. TELAPREVIR [Suspect]
     Indication: HEPATITIS C
     Dosage: UNK
     Dates: start: 20120629, end: 20120921

REACTIONS (11)
  - Dysphagia [Unknown]
  - Pain [Unknown]
  - Hyperhidrosis [Unknown]
  - Asthenia [Unknown]
  - Pruritus [Unknown]
  - Diarrhoea [Unknown]
  - Vomiting [Unknown]
  - Injection site discolouration [Unknown]
  - Injection site pain [Unknown]
  - Fatigue [Unknown]
  - Depression [Unknown]
